FAERS Safety Report 14262475 (Version 1)
Quarter: 2017Q4

REPORT INFORMATION
  Report Type: Report from Study
  Country: US (occurrence: US)
  Receive Date: 20171208
  Receipt Date: 20171208
  Transmission Date: 20180321
  Serious: No
  Sender: FDA-Public Use
  Company Number: US-KYOWAKIRIN-2017BKK002212

PATIENT

DRUGS (2)
  1. CARBOPLATIN. [Concomitant]
     Active Substance: CARBOPLATIN
     Indication: CHEMOTHERAPY
     Dosage: UNKNOWN
     Route: 065
  2. GRANISETRON [Suspect]
     Active Substance: GRANISETRON
     Indication: PROPHYLAXIS OF NAUSEA AND VOMITING
     Dosage: 1 DF, THE DAY OF CARBOPLATIN AND KEEP ON FOR 7 DAYS
     Route: 062
     Dates: start: 2017

REACTIONS (6)
  - Application site erythema [Unknown]
  - Application site urticaria [Unknown]
  - Application site reaction [Unknown]
  - Application site pruritus [Unknown]
  - Drug prescribing error [Unknown]
  - Inappropriate schedule of drug administration [None]

NARRATIVE: CASE EVENT DATE: 2017
